FAERS Safety Report 11216958 (Version 1)
Quarter: 2015Q2

REPORT INFORMATION
  Report Type: Report from Study
  Country: ES (occurrence: ES)
  Receive Date: 20150624
  Receipt Date: 20150624
  Transmission Date: 20150821
  Serious: Yes (Hospitalization)
  Sender: FDA-Public Use
  Company Number: ES-JAZZ-JPI-P-029996

PATIENT
  Age: 60 Year
  Sex: Male
  Weight: 71 kg

DRUGS (9)
  1. MODAFINIL. [Concomitant]
     Active Substance: MODAFINIL
     Indication: HYPERSOMNIA
     Route: 048
  2. XYREM [Suspect]
     Active Substance: SODIUM OXYBATE
     Indication: CATAPLEXY
  3. ENALAPRIL [Concomitant]
     Active Substance: ENALAPRIL
     Indication: HYPERTENSION
     Dosage: SINGLE (20/125 MILLIGRAM)
     Route: 048
  4. PRAVASTATIN [Concomitant]
     Active Substance: PRAVASTATIN\PRAVASTATIN SODIUM
     Indication: DYSLIPIDAEMIA
     Route: 048
  5. ENCONCORD [Concomitant]
     Indication: HYPERTENSION
     Route: 048
  6. CEFUROXIMA [Concomitant]
     Indication: PROPHYLAXIS
     Route: 048
     Dates: start: 20121022, end: 20121027
  7. XYREM [Suspect]
     Active Substance: SODIUM OXYBATE
     Indication: NARCOLEPSY
     Dosage: 6.5 G, QD
     Route: 048
     Dates: start: 20120710
  8. PARACETAMOL [Concomitant]
     Active Substance: ACETAMINOPHEN
     Indication: PROPHYLAXIS
     Route: 048
     Dates: start: 20121010
  9. VENLAFAXINE [Concomitant]
     Active Substance: VENLAFAXINE HYDROCHLORIDE
     Indication: PROPHYLAXIS
     Route: 048

REACTIONS (2)
  - Pseudomonas infection [Recovered/Resolved]
  - Post procedural infection [Recovered/Resolved]

NARRATIVE: CASE EVENT DATE: 20121027
